FAERS Safety Report 8160528-8 (Version None)
Quarter: 2012Q1

REPORT INFORMATION
  Report Type: 
  Country: None (occurrence: None)
  Receive Date: 20120223
  Receipt Date: 20120217
  Transmission Date: 20120608
  Serious: Yes (Hospitalization)
  Sender: FDA-Public Use
  Company Number: GB-PFIZER INC-2012047798

PATIENT
  Age: 65 Year
  Sex: Male

DRUGS (7)
  1. OXYCODONE [Concomitant]
     Dosage: 5 MG, UNK
  2. LANSOPRAZOLE [Concomitant]
     Dosage: 30 MG, 1X/DAY
     Route: 048
  3. GOSERELIN [Concomitant]
     Dosage: 3.6 MG, MONTHLY ONCE PER MONTH
     Route: 030
  4. ZYTIGA [Suspect]
     Indication: PROSTATE CANCER METASTATIC
     Dosage: 1 G, UNK
     Route: 048
     Dates: start: 20120116
  5. RAMIPRIL [Suspect]
     Dosage: 2.5 MG, 1X/DAY
     Route: 048
     Dates: end: 20120131
  6. CORZIDE [Suspect]
     Dosage: 5 MG, 1X/DAY
     Dates: end: 20120131
  7. METOCLOPRAMIDE [Concomitant]
     Dosage: 10 MG, 3X/DAY
     Route: 048

REACTIONS (6)
  - ARRHYTHMIA [None]
  - LOWER RESPIRATORY TRACT INFECTION [None]
  - CREPITATIONS [None]
  - RENAL FAILURE ACUTE [None]
  - ATRIAL FIBRILLATION [None]
  - DYSPNOEA [None]
